FAERS Safety Report 25416591 (Version 4)
Quarter: 2025Q3

REPORT INFORMATION
  Report Type: Other
  Country: EU (occurrence: EU)
  Receive Date: 20250610
  Receipt Date: 20250714
  Transmission Date: 20251020
  Serious: Yes (Death, Life-Threatening, Hospitalization, Other)
  Sender: ZYDUS PHARM
  Company Number: EU-002147023-NVSC2025FR058462

PATIENT

DRUGS (48)
  1. METFORMIN [Suspect]
     Active Substance: METFORMIN HYDROCHLORIDE
     Indication: Product used for unknown indication
     Route: 048
  2. LETROZOLE [Suspect]
     Active Substance: LETROZOLE
     Indication: Intraductal proliferative breast lesion
     Route: 065
  3. LETROZOLE [Suspect]
     Active Substance: LETROZOLE
     Indication: Hormone therapy
  4. KISQALI [Suspect]
     Active Substance: RIBOCICLIB SUCCINATE
     Indication: Hormone receptor positive HER2 negative breast cancer
     Route: 048
     Dates: start: 20250326, end: 20250331
  5. KISQALI [Suspect]
     Active Substance: RIBOCICLIB SUCCINATE
     Indication: Intraductal proliferative breast lesion
     Route: 048
     Dates: start: 20250331
  6. NOREPINEPHRINE BITARTRATE [Concomitant]
     Active Substance: NOREPINEPHRINE BITARTRATE
     Indication: Product used for unknown indication
     Route: 065
  7. INSULIN HUMAN [Concomitant]
     Active Substance: INSULIN HUMAN
     Indication: Product used for unknown indication
     Route: 065
  8. SPIRAMYCIN [Concomitant]
     Active Substance: SPIRAMYCIN
     Indication: Respiratory tract infection
     Route: 065
  9. SPIRAMYCIN [Concomitant]
     Active Substance: SPIRAMYCIN
     Route: 065
  10. SPIRAMYCIN [Concomitant]
     Active Substance: SPIRAMYCIN
     Route: 065
  11. SPIRAMYCIN [Concomitant]
     Active Substance: SPIRAMYCIN
     Route: 065
  12. SPIRAMYCIN [Concomitant]
     Active Substance: SPIRAMYCIN
     Route: 065
  13. SPIRAMYCIN [Concomitant]
     Active Substance: SPIRAMYCIN
     Route: 065
  14. SPIRAMYCIN [Concomitant]
     Active Substance: SPIRAMYCIN
     Route: 065
  15. SPIRAMYCIN [Concomitant]
     Active Substance: SPIRAMYCIN
     Route: 065
  16. SPIRAMYCIN [Concomitant]
     Active Substance: SPIRAMYCIN
     Route: 065
  17. SPIRAMYCIN [Concomitant]
     Active Substance: SPIRAMYCIN
     Route: 065
  18. SPIRAMYCIN [Concomitant]
     Active Substance: SPIRAMYCIN
     Route: 065
  19. SPIRAMYCIN [Concomitant]
     Active Substance: SPIRAMYCIN
     Route: 065
  20. SPIRAMYCIN [Concomitant]
     Active Substance: SPIRAMYCIN
     Route: 065
  21. SPIRAMYCIN [Concomitant]
     Active Substance: SPIRAMYCIN
     Route: 065
  22. SPIRAMYCIN [Concomitant]
     Active Substance: SPIRAMYCIN
     Route: 065
  23. SPIRAMYCIN [Concomitant]
     Active Substance: SPIRAMYCIN
     Route: 065
  24. SPIRAMYCIN [Concomitant]
     Active Substance: SPIRAMYCIN
     Route: 065
  25. SPIRAMYCIN [Concomitant]
     Active Substance: SPIRAMYCIN
     Route: 065
  26. SPIRAMYCIN [Concomitant]
     Active Substance: SPIRAMYCIN
     Route: 065
  27. SPIRAMYCIN [Concomitant]
     Active Substance: SPIRAMYCIN
     Route: 065
  28. SPIRAMYCIN [Concomitant]
     Active Substance: SPIRAMYCIN
     Route: 065
  29. SPIRAMYCIN [Concomitant]
     Active Substance: SPIRAMYCIN
     Route: 065
  30. SPIRAMYCIN [Concomitant]
     Active Substance: SPIRAMYCIN
     Route: 065
  31. SPIRAMYCIN [Concomitant]
     Active Substance: SPIRAMYCIN
     Route: 065
  32. SPIRAMYCIN [Concomitant]
     Active Substance: SPIRAMYCIN
     Route: 065
  33. SPIRAMYCIN [Concomitant]
     Active Substance: SPIRAMYCIN
     Route: 065
  34. SPIRAMYCIN [Concomitant]
     Active Substance: SPIRAMYCIN
     Route: 065
  35. SPIRAMYCIN [Concomitant]
     Active Substance: SPIRAMYCIN
     Route: 065
  36. SPIRAMYCIN [Concomitant]
     Active Substance: SPIRAMYCIN
     Route: 065
  37. AMIKACIN [Concomitant]
     Active Substance: AMIKACIN
     Indication: Product used for unknown indication
     Route: 065
  38. MIDAZOLAM HYDROCHLORIDE [Concomitant]
     Active Substance: MIDAZOLAM HYDROCHLORIDE
     Indication: Product used for unknown indication
     Route: 065
  39. SPIRAMYCIN [Concomitant]
     Active Substance: SPIRAMYCIN
     Indication: Respiratory tract infection
     Route: 065
  40. OXAZEPAM [Concomitant]
     Active Substance: OXAZEPAM
     Indication: Anxiety
     Route: 065
  41. NICARDIPINE HYDROCHLORIDE [Concomitant]
     Active Substance: NICARDIPINE HYDROCHLORIDE
     Indication: Blood pressure increased
     Route: 048
  42. NICARDIPINE HYDROCHLORIDE [Concomitant]
     Active Substance: NICARDIPINE HYDROCHLORIDE
     Indication: Cardiac failure
  43. KERLONE [Concomitant]
     Active Substance: BETAXOLOL HYDROCHLORIDE
     Indication: Hypertension
     Route: 048
  44. IRBESARTAN [Concomitant]
     Active Substance: IRBESARTAN
     Indication: Hypertension
     Route: 048
  45. FUROSEMIDE [Concomitant]
     Active Substance: FUROSEMIDE
     Indication: Hypertension
     Route: 048
  46. DAPAGLIFLOZIN [Concomitant]
     Active Substance: DAPAGLIFLOZIN
     Indication: Diabetes mellitus
     Route: 065
  47. OMEPRAZOLE [Concomitant]
     Active Substance: OMEPRAZOLE
     Indication: Peptic ulcer
     Route: 048
  48. CHOLECALCIFEROL [Concomitant]
     Active Substance: CHOLECALCIFEROL
     Indication: Peptic ulcer
     Route: 048

REACTIONS (16)
  - Death [Fatal]
  - Dyspnoea [Fatal]
  - Hyperlactacidaemia [Fatal]
  - Nausea [Fatal]
  - Diabetic ketoacidosis [Fatal]
  - Gastrointestinal disorder [Fatal]
  - Acute kidney injury [Fatal]
  - Multiple organ dysfunction syndrome [Unknown]
  - Toxicity to various agents [Unknown]
  - Diarrhoea [Fatal]
  - Hypothermia [Recovering/Resolving]
  - Metabolic acidosis [Fatal]
  - Dyspepsia [Unknown]
  - Acetonaemia [Unknown]
  - Hypotension [Unknown]
  - Vomiting [Unknown]

NARRATIVE: CASE EVENT DATE: 20250331
